FAERS Safety Report 14023677 (Version 1)
Quarter: 2017Q3

REPORT INFORMATION
  Report Type: Report from Study
  Country: None (occurrence: CO)
  Receive Date: 20170928
  Receipt Date: 20170928
  Transmission Date: 20171128
  Serious: Yes (Death)
  Sender: FDA-Public Use
  Company Number: CO-ABBVIE-17K-036-2115593-00

PATIENT
  Age: 28 Year
  Sex: Male

DRUGS (1)
  1. HUMIRA [Suspect]
     Active Substance: ADALIMUMAB
     Indication: ANKYLOSING SPONDYLITIS
     Route: 058
     Dates: start: 20170814, end: 20170913

REACTIONS (3)
  - Cardio-respiratory arrest [Fatal]
  - Vomiting [Fatal]
  - Pyrexia [Fatal]

NARRATIVE: CASE EVENT DATE: 20170915
